FAERS Safety Report 8812201 (Version 2)
Quarter: 2014Q3

REPORT INFORMATION
  Report Type: Report from Study
  Country: US (occurrence: US)
  Receive Date: 20120927
  Receipt Date: 20140828
  Transmission Date: 20150326
  Serious: Yes (Hospitalization, Other)
  Sender: FDA-Public Use
  Company Number: US-ROCHE-1126044

PATIENT
  Sex: Female
  Weight: 81 kg

DRUGS (13)
  1. FASLODEX [Concomitant]
     Active Substance: FULVESTRANT
  2. FLEXERIL [Concomitant]
     Active Substance: CYCLOBENZAPRINE HYDROCHLORIDE
  3. TPN [Concomitant]
     Active Substance: AMINO ACIDS\DEXTROSE\ELECTROLYTES NOS\SOYBEAN OIL
  4. AVASTIN [Suspect]
     Active Substance: BEVACIZUMAB
     Indication: BREAST CANCER FEMALE
     Route: 042
  5. APREDNISLON [Concomitant]
     Active Substance: PREDNISOLONE
  6. ADRIAMYCIN [Concomitant]
     Active Substance: DOXORUBICIN HYDROCHLORIDE
  7. CYTOXAN [Concomitant]
     Active Substance: CYCLOPHOSPHAMIDE
  8. CISPLATIN. [Concomitant]
     Active Substance: CISPLATIN
  9. GEMZAR [Concomitant]
     Active Substance: GEMCITABINE HYDROCHLORIDE
  10. AVASTIN [Suspect]
     Active Substance: BEVACIZUMAB
     Indication: BREAST CANCER METASTATIC
  11. TAXOL [Concomitant]
     Active Substance: PACLITAXEL
  12. DURAGESIC PATCH [Concomitant]
  13. ABRAXANE [Concomitant]
     Active Substance: PACLITAXEL

REACTIONS (6)
  - Malaise [Unknown]
  - Off label use [Unknown]
  - Musculoskeletal stiffness [Unknown]
  - Compression fracture [Unknown]
  - Asthma [Unknown]
  - Muscle spasms [Unknown]
